FAERS Safety Report 5137895-2 (Version None)
Quarter: 2006Q4

REPORT INFORMATION
  Report Type: 
  Country: None (occurrence: None)
  Receive Date: 20061030
  Receipt Date: 20060206
  Transmission Date: 20070319
  Serious: No
  Sender: FDA-Public Use
  Company Number: US-GLAXOSMITHKLINE-A0592489A

PATIENT
  Age: 40 Year
  Sex: Female

DRUGS (8)
  1. ADVAIR HFA [Suspect]
     Indication: ASTHMA
     Route: 055
     Dates: start: 20060102
  2. PROZAC [Concomitant]
  3. QVAR 40 [Concomitant]
  4. DILTIAZEM HCL [Concomitant]
  5. RESTORIL [Concomitant]
  6. ATIVAN [Concomitant]
  7. LOVASTATIN [Concomitant]
  8. PREDNISONE TAB [Concomitant]

REACTIONS (2)
  - BACK PAIN [None]
  - MYALGIA [None]
